FAERS Safety Report 5833874-8 (Version None)
Quarter: 2008Q3

REPORT INFORMATION
  Report Type: 
  Country: None (occurrence: None)
  Receive Date: 20080805
  Receipt Date: 20080729
  Transmission Date: 20090109
  Serious: Yes (Other)
  Sender: FDA-Public Use
  Company Number: MX-ROCHE-576347

PATIENT
  Sex: Female
  Weight: 52 kg

DRUGS (1)
  1. VALIUM [Suspect]
     Indication: DRUG USE FOR UNKNOWN INDICATION
     Dosage: TAKEN DAILY.
     Route: 048
     Dates: start: 19980101

REACTIONS (1)
  - BLOOD GLUCOSE INCREASED [None]
